FAERS Safety Report 7706943-5 (Version None)
Quarter: 2011Q3

REPORT INFORMATION
  Report Type: 
  Country: None (occurrence: None)
  Receive Date: 20110824
  Receipt Date: 20110819
  Transmission Date: 20111222
  Serious: Yes (Hospitalization)
  Sender: FDA-Public Use
  Company Number: FR-GLAXOSMITHKLINE-B0740968A

PATIENT
  Sex: Male

DRUGS (8)
  1. ZOLPIDEM [Concomitant]
     Route: 065
  2. DUOPLAVIN [Concomitant]
     Route: 065
  3. OLMIFON [Concomitant]
     Route: 065
  4. ROPINIROLE HYDROCHLORIDE [Suspect]
     Indication: PRODUCT USED FOR UNKNOWN INDICATION
     Dosage: 1UNIT PER DAY
     Route: 048
     Dates: start: 20110624, end: 20110724
  5. AMLODIPINE BESYLATE [Concomitant]
     Route: 065
  6. ADANCOR [Concomitant]
     Route: 065
  7. PRAVASTATIN [Concomitant]
     Route: 065
  8. BISOPROLOL FUMARATE [Suspect]
     Indication: PRODUCT USED FOR UNKNOWN INDICATION
     Dosage: 1.25MG PER DAY
     Route: 048
     Dates: end: 20110724

REACTIONS (4)
  - HEAD INJURY [None]
  - LOSS OF CONSCIOUSNESS [None]
  - SINUS BRADYCARDIA [None]
  - SYNCOPE [None]
